FAERS Safety Report 4903419-5 (Version None)
Quarter: 2006Q1

REPORT INFORMATION
  Report Type: 
  Country: None (occurrence: None)
  Receive Date: 20060203
  Receipt Date: 20060125
  Transmission Date: 20060701
  Serious: Yes (Death)
  Sender: FDA-Public Use
  Company Number: USA-2006-0022189

PATIENT
  Sex: Male

DRUGS (1)
  1. MS CONTIN [Suspect]
     Dosage: 100 MG, DAILY, INTRAVENOUS
     Route: 042
     Dates: start: 20050901, end: 20050901

REACTIONS (2)
  - DRUG ABUSER [None]
  - INCORRECT ROUTE OF DRUG ADMINISTRATION [None]
